FAERS Safety Report 19714844 (Version 10)
Quarter: 2022Q3

REPORT INFORMATION
  Report Type: Spontaneous
  Country: FR (occurrence: FR)
  Receive Date: 20210818
  Receipt Date: 20220901
  Transmission Date: 20221027
  Serious: Yes (Hospitalization, Disabling, Other)
  Sender: FDA-Public Use
  Company Number: FR-THERAMEX-2021000843

PATIENT
  Age: 50 Year
  Sex: Female
  Weight: 61 kg

DRUGS (90)
  1. BROMAZEPAM [Suspect]
     Active Substance: BROMAZEPAM
     Indication: Product used for unknown indication
     Dosage: UNK
     Route: 065
  2. VENLAFAXINE [Suspect]
     Active Substance: VENLAFAXINE HYDROCHLORIDE
     Indication: Headache
     Dosage: UNK
     Route: 065
  3. CYPROTERONE ACETATE [Suspect]
     Active Substance: CYPROTERONE ACETATE
     Indication: Hirsutism
     Dosage: 1 GRAM
     Route: 065
     Dates: start: 20110506, end: 201506
  4. CYPROTERONE ACETATE [Suspect]
     Active Substance: CYPROTERONE ACETATE
     Indication: Hirsutism
     Dosage: 500 MILLIGRAM
     Route: 065
     Dates: start: 201505
  5. CYPROTERONE ACETATE [Suspect]
     Active Substance: CYPROTERONE ACETATE
     Indication: Oral contraception
     Dosage: 1 GRAM,TABLET
     Route: 065
     Dates: start: 20150617
  6. CYPROTERONE ACETATE [Suspect]
     Active Substance: CYPROTERONE ACETATE
     Dosage: 1 UNK
     Route: 065
     Dates: start: 20110506, end: 201506
  7. CYPROTERONE ACETATE [Suspect]
     Active Substance: CYPROTERONE ACETATE
     Dosage: 50 MILLIGRAM(EVERY 1 DAY)
     Route: 048
     Dates: start: 201105, end: 201506
  8. CYPROTERONE ACETATE [Suspect]
     Active Substance: CYPROTERONE ACETATE
     Dosage: UNK
     Route: 065
     Dates: start: 20131127
  9. CYPROTERONE ACETATE [Suspect]
     Active Substance: CYPROTERONE ACETATE
     Dosage: UNK
     Route: 065
     Dates: start: 20170323
  10. CYPROTERONE ACETATE [Suspect]
     Active Substance: CYPROTERONE ACETATE
     Dosage: UNK
     Route: 065
     Dates: start: 20150115
  11. CYPROTERONE ACETATE [Suspect]
     Active Substance: CYPROTERONE ACETATE
     Dosage: UNK
     Route: 065
     Dates: start: 20111104
  12. CYPROTERONE ACETATE [Suspect]
     Active Substance: CYPROTERONE ACETATE
     Dosage: UNK
     Route: 065
     Dates: start: 20170717
  13. CYPROTERONE ACETATE [Suspect]
     Active Substance: CYPROTERONE ACETATE
     Dosage: UNK
     Route: 065
     Dates: start: 20130514
  14. CYPROTERONE ACETATE [Suspect]
     Active Substance: CYPROTERONE ACETATE
     Dosage: UNK
     Route: 065
     Dates: start: 20121113
  15. CYPROTERONE ACETATE [Suspect]
     Active Substance: CYPROTERONE ACETATE
     Dosage: 1 DOSAGE FORM, ONCE A DAY
     Route: 048
     Dates: start: 201105, end: 201504
  16. CYPROTERONE ACETATE [Suspect]
     Active Substance: CYPROTERONE ACETATE
     Dosage: UNK
     Route: 065
     Dates: start: 20111107
  17. INDOMETHACIN [Suspect]
     Active Substance: INDOMETHACIN
     Indication: Headache
     Dosage: UNK
     Route: 065
  18. DIANE (CYPROTERONE ACETATE\ETHINYL ESTRADIOL) [Suspect]
     Active Substance: CYPROTERONE ACETATE\ETHINYL ESTRADIOL
     Indication: Haemorrhage
     Dosage: UNK
     Route: 065
     Dates: start: 199905, end: 200011
  19. DIANE (CYPROTERONE ACETATE\ETHINYL ESTRADIOL) [Suspect]
     Active Substance: CYPROTERONE ACETATE\ETHINYL ESTRADIOL
     Indication: Migraine
     Dosage: UNK
     Route: 065
     Dates: start: 20000628
  20. DIANE (CYPROTERONE ACETATE\ETHINYL ESTRADIOL) [Suspect]
     Active Substance: CYPROTERONE ACETATE\ETHINYL ESTRADIOL
     Indication: Intermenstrual bleeding
     Dosage: UNK
     Route: 065
     Dates: start: 20011105
  21. DIANE (CYPROTERONE ACETATE\ETHINYL ESTRADIOL) [Suspect]
     Active Substance: CYPROTERONE ACETATE\ETHINYL ESTRADIOL
     Indication: Haemorrhage
     Dosage: UNK
     Route: 065
     Dates: start: 20001128
  22. DIANE (CYPROTERONE ACETATE\ETHINYL ESTRADIOL) [Suspect]
     Active Substance: CYPROTERONE ACETATE\ETHINYL ESTRADIOL
     Dosage: UNK
     Route: 065
     Dates: start: 200111, end: 200111
  23. KEPPRA [Suspect]
     Active Substance: LEVETIRACETAM
     Indication: Product used for unknown indication
     Dosage: UNK
     Route: 065
  24. AMITRIPTYLINE HYDROCHLORIDE [Suspect]
     Active Substance: AMITRIPTYLINE HYDROCHLORIDE
     Indication: Headache
     Dosage: UNK
     Route: 065
  25. BROMAZEPAM [Suspect]
     Active Substance: BROMAZEPAM
     Indication: Product used for unknown indication
     Dosage: UNK
     Route: 065
  26. CHLORMADINONE ACETATE [Suspect]
     Active Substance: CHLORMADINONE ACETATE
     Indication: Migraine
     Dosage: 1 DOSAGE FORM, ONCE A DAY
     Route: 048
     Dates: start: 20011105, end: 200211
  27. CHLORMADINONE ACETATE [Suspect]
     Active Substance: CHLORMADINONE ACETATE
     Indication: Ovarian cyst
     Dosage: UNK
     Route: 065
     Dates: start: 20160226, end: 2017
  28. CHLORMADINONE ACETATE [Suspect]
     Active Substance: CHLORMADINONE ACETATE
     Dosage: UNK
     Route: 065
     Dates: start: 2017, end: 2019
  29. CHLORMADINONE ACETATE [Suspect]
     Active Substance: CHLORMADINONE ACETATE
     Dosage: UNK
     Route: 065
     Dates: start: 2019
  30. NOMEGESTROL ACETATE [Suspect]
     Active Substance: NOMEGESTROL ACETATE
     Indication: Haemorrhage
     Dosage: UNK
     Route: 065
     Dates: start: 20021113, end: 2011
  31. NOMEGESTROL ACETATE [Suspect]
     Active Substance: NOMEGESTROL ACETATE
     Indication: Migraine
     Dosage: UNK
     Route: 065
     Dates: start: 201103
  32. NOMEGESTROL ACETATE [Suspect]
     Active Substance: NOMEGESTROL ACETATE
     Indication: Intermenstrual bleeding
     Dosage: 1 DOSAGE FORM(EVERY 1 DAY))
     Route: 048
     Dates: start: 20021113, end: 201103
  33. NOMEGESTROL ACETATE [Suspect]
     Active Substance: NOMEGESTROL ACETATE
     Indication: Migraine
     Dosage: UNK
     Route: 065
     Dates: start: 20040923
  34. NOMEGESTROL ACETATE [Suspect]
     Active Substance: NOMEGESTROL ACETATE
     Indication: Oral contraception
     Dosage: 10 MILLIGRAM
     Route: 065
     Dates: start: 2002, end: 2002
  35. NOMEGESTROL ACETATE [Suspect]
     Active Substance: NOMEGESTROL ACETATE
     Indication: Ovarian cyst
     Dosage: UNK
     Route: 065
     Dates: start: 20170525, end: 20170614
  36. NOMEGESTROL ACETATE [Suspect]
     Active Substance: NOMEGESTROL ACETATE
     Indication: Contraception
     Dosage: UNK
     Route: 065
     Dates: start: 20100206
  37. NOMEGESTROL ACETATE [Suspect]
     Active Substance: NOMEGESTROL ACETATE
     Dosage: UNK
     Route: 065
     Dates: start: 20031112
  38. NOMEGESTROL ACETATE [Suspect]
     Active Substance: NOMEGESTROL ACETATE
     Dosage: 10 MILLIGRAM
     Route: 065
     Dates: start: 20020404
  39. NOMEGESTROL ACETATE [Suspect]
     Active Substance: NOMEGESTROL ACETATE
     Dosage: 1 DOSAGE FORM, ONCE A DAY
     Route: 065
     Dates: start: 201111
  40. NOMEGESTROL ACETATE [Suspect]
     Active Substance: NOMEGESTROL ACETATE
     Dosage: UNK
     Route: 065
     Dates: start: 20050420
  41. NOMEGESTROL ACETATE [Suspect]
     Active Substance: NOMEGESTROL ACETATE
     Dosage: UNK (RENEWAL LUTENYL)
     Route: 065
     Dates: start: 20080429
  42. NOMEGESTROL ACETATE [Suspect]
     Active Substance: NOMEGESTROL ACETATE
     Dosage: UNK (LUTENYL CONTINUOUSLY)
     Route: 065
     Dates: start: 20071010
  43. NOMEGESTROL ACETATE [Suspect]
     Active Substance: NOMEGESTROL ACETATE
     Dosage: UNK
     Route: 065
     Dates: start: 20190226
  44. NOMEGESTROL ACETATE [Suspect]
     Active Substance: NOMEGESTROL ACETATE
     Dosage: UNK
     Route: 065
     Dates: start: 20040330
  45. NOMEGESTROL ACETATE [Suspect]
     Active Substance: NOMEGESTROL ACETATE
     Dosage: UNK
     Route: 065
     Dates: start: 20030430
  46. NOMEGESTROL ACETATE [Suspect]
     Active Substance: NOMEGESTROL ACETATE
     Dosage: UNK (LUTENYL CONTINUOUSLY)
     Route: 065
     Dates: start: 20061027
  47. NOMEGESTROL ACETATE [Suspect]
     Active Substance: NOMEGESTROL ACETATE
     Dosage: UNK (LUTENYL CONTINUOUSLY )
     Route: 065
     Dates: start: 20091116
  48. NOMEGESTROL ACETATE [Suspect]
     Active Substance: NOMEGESTROL ACETATE
     Dosage: UNK
     Route: 065
     Dates: start: 20110316
  49. NOMEGESTROL ACETATE [Suspect]
     Active Substance: NOMEGESTROL ACETATE
     Dosage: UNK (LUTENYL CONTINUOUSLY)
     Route: 065
     Dates: start: 20051025
  50. NOMEGESTROL ACETATE [Suspect]
     Active Substance: NOMEGESTROL ACETATE
     Dosage: UNK (LUTENYL CONTINUOUSLY)
     Route: 065
     Dates: start: 20080408
  51. NOMEGESTROL ACETATE [Suspect]
     Active Substance: NOMEGESTROL ACETATE
     Dosage: UNK (LUTENYL CONTINUOUSLY)
     Route: 065
     Dates: start: 20070503
  52. NOMEGESTROL ACETATE [Suspect]
     Active Substance: NOMEGESTROL ACETATE
     Dosage: UNK
     Route: 065
     Dates: start: 2002, end: 2011
  53. NOMEGESTROL ACETATE [Suspect]
     Active Substance: NOMEGESTROL ACETATE
     Dosage: UNK
     Route: 065
     Dates: start: 200211, end: 200403
  54. NOMEGESTROL ACETATE [Suspect]
     Active Substance: NOMEGESTROL ACETATE
     Dosage: UNK
     Route: 065
     Dates: start: 20011105, end: 2002
  55. ASPIRIN LYSINE\METOCLOPRAMIDE HYDROCHLORIDE [Suspect]
     Active Substance: ASPIRIN LYSINE\METOCLOPRAMIDE HYDROCHLORIDE
     Indication: Headache
     Dosage: UNK
     Route: 065
  56. MEDROL [Suspect]
     Active Substance: METHYLPREDNISOLONE
     Indication: Product used for unknown indication
     Dosage: UNK
     Route: 065
  57. MEDROL [Suspect]
     Active Substance: METHYLPREDNISOLONE
     Dosage: 4 MILLIGRAM
     Route: 048
     Dates: start: 201602
  58. OXETORONE [Suspect]
     Active Substance: OXETORONE
     Indication: Headache
     Dosage: UNK
     Route: 065
  59. SINGULAIR [Suspect]
     Active Substance: MONTELUKAST SODIUM
     Indication: Product used for unknown indication
     Dosage: UNK
     Route: 065
     Dates: start: 20110516
  60. ESCITALOPRAM OXALATE [Suspect]
     Active Substance: ESCITALOPRAM OXALATE
     Indication: Product used for unknown indication
     Dosage: 15 MILLIGRAM
     Route: 065
  61. ESCITALOPRAM OXALATE [Suspect]
     Active Substance: ESCITALOPRAM OXALATE
     Dosage: UNK
     Route: 065
  62. ESCITALOPRAM OXALATE [Suspect]
     Active Substance: ESCITALOPRAM OXALATE
     Dosage: UNK
  63. ALBUTEROL [Suspect]
     Active Substance: ALBUTEROL
     Indication: Asthma
     Dosage: UNK
     Route: 065
  64. VENTOLIN [Suspect]
     Active Substance: ALBUTEROL SULFATE
     Indication: Asthma
     Dosage: UNK
     Route: 065
  65. ALMOTRIPTAN MALATE [Suspect]
     Active Substance: ALMOTRIPTAN MALATE
     Indication: Headache
     Dosage: UNK
     Route: 065
  66. PROPRANOLOL HYDROCHLORIDE [Suspect]
     Active Substance: PROPRANOLOL HYDROCHLORIDE
     Indication: Product used for unknown indication
     Dosage: UNK
     Route: 065
     Dates: start: 199703
  67. PROPRANOLOL HYDROCHLORIDE [Suspect]
     Active Substance: PROPRANOLOL HYDROCHLORIDE
     Dosage: 1.5 DOSAGE FORM
     Route: 065
     Dates: start: 20001128
  68. PAROXETINE HYDROCHLORIDE [Concomitant]
     Active Substance: PAROXETINE HYDROCHLORIDE
     Indication: Product used for unknown indication
     Dosage: UNK
     Route: 065
     Dates: start: 20051025
  69. PROMESTRIENE [Concomitant]
     Active Substance: PROMESTRIENE
     Indication: Product used for unknown indication
     Dosage: UNK
     Route: 048
     Dates: start: 20091116
  70. PROMESTRIENE [Concomitant]
     Active Substance: PROMESTRIENE
     Dosage: 1 DOSAGE FORM
     Route: 065
     Dates: start: 20090424
  71. PROMESTRIENE [Concomitant]
     Active Substance: PROMESTRIENE
     Dosage: UNK
     Route: 048
     Dates: start: 20090429
  72. ESTRADIOL [Concomitant]
     Active Substance: ESTRADIOL
     Indication: Dysmenorrhoea
     Dosage: UNK
     Route: 065
  73. ESTRADIOL [Concomitant]
     Active Substance: ESTRADIOL
     Indication: Hair disorder
     Dosage: UNK
     Route: 065
     Dates: start: 20130514
  74. ESTRADIOL [Concomitant]
     Active Substance: ESTRADIOL
     Dosage: 2 DOSAGE FORM(GEL 2 P )
     Route: 065
     Dates: start: 20150617
  75. ESTRADIOL [Concomitant]
     Active Substance: ESTRADIOL
     Dosage: 1 DOSAGE FORM
     Route: 065
     Dates: start: 20131127
  76. TOPIRAMATE [Concomitant]
     Active Substance: TOPIRAMATE
     Indication: Headache
     Dosage: UNK
     Route: 065
     Dates: start: 20100608
  77. TOPIRAMATE [Concomitant]
     Active Substance: TOPIRAMATE
     Dosage: UNK
     Route: 065
     Dates: start: 20110516
  78. PRAZEPAM [Concomitant]
     Active Substance: PRAZEPAM
     Indication: Product used for unknown indication
     Dosage: UNK
     Route: 065
     Dates: start: 20051025
  79. PRAZEPAM [Concomitant]
     Active Substance: PRAZEPAM
     Dosage: 0.5 DOSAGE FORM
     Route: 065
     Dates: start: 20060502
  80. PRAZEPAM [Concomitant]
     Active Substance: PRAZEPAM
     Dosage: 1.5 DOSAGE FORM, ONCE A DAY
     Route: 065
     Dates: start: 20090424
  81. PRAZEPAM [Concomitant]
     Active Substance: PRAZEPAM
     Dosage: UNK UNK, ONCE A DAY
     Route: 065
     Dates: start: 20090429
  82. TIANEPTINE [Concomitant]
     Active Substance: TIANEPTINE
     Indication: Headache
     Dosage: 1 DOSAGE FORM, ONCE A DAY
     Route: 065
     Dates: start: 20061027
  83. TIANEPTINE [Concomitant]
     Active Substance: TIANEPTINE
     Dosage: 2 DOSAGE FORM, ONCE A DAY
     Route: 065
     Dates: start: 20100608
  84. Sibelium [Concomitant]
     Indication: Product used for unknown indication
     Dosage: UNK
     Route: 065
  85. PULMICORT TURBUHALER [Concomitant]
     Active Substance: BUDESONIDE
     Indication: Product used for unknown indication
     Dosage: UNK
     Route: 065
     Dates: start: 20110516
  86. PROMESTRIENE [Concomitant]
     Active Substance: PROMESTRIENE
     Indication: Product used for unknown indication
     Dosage: 1 DOSAGE FORM
     Route: 067
     Dates: start: 20090429
  87. PROMESTRIENE [Concomitant]
     Active Substance: PROMESTRIENE
     Dosage: 1 DOSAGE FORM
     Route: 067
     Dates: start: 20091116
  88. DOLIPRANE [Concomitant]
     Active Substance: ACETAMINOPHEN
     Indication: Product used for unknown indication
     Dosage: UNK
     Route: 065
  89. DIHYDROERGOTAMINE MESYLATE [Concomitant]
     Active Substance: DIHYDROERGOTAMINE MESYLATE
     Indication: Product used for unknown indication
     Dosage: UNK
     Route: 048
     Dates: start: 20050420
  90. KETOPROFEN [Concomitant]
     Active Substance: KETOPROFEN
     Indication: Product used for unknown indication
     Dosage: 2 DOSAGE FORM, ONCE A DAY
     Route: 065
     Dates: start: 20050420

REACTIONS (82)
  - Meningioma [Not Recovered/Not Resolved]
  - Exophthalmos [Recovered/Resolved]
  - Coordination abnormal [Not Recovered/Not Resolved]
  - Eye pain [Not Recovered/Not Resolved]
  - Eyelid ptosis [Not Recovered/Not Resolved]
  - Gait disturbance [Not Recovered/Not Resolved]
  - Hypoaesthesia eye [Recovered/Resolved]
  - Heterophoria [Recovered/Resolved]
  - Mydriasis [Not Recovered/Not Resolved]
  - Nausea [Not Recovered/Not Resolved]
  - Pain [Not Recovered/Not Resolved]
  - Paraesthesia [Not Recovered/Not Resolved]
  - Anisocoria [Not Recovered/Not Resolved]
  - Photophobia [Recovered/Resolved]
  - Somnolence [Not Recovered/Not Resolved]
  - Migraine with aura [Not Recovered/Not Resolved]
  - Neck pain [Not Recovered/Not Resolved]
  - General physical health deterioration [Not Recovered/Not Resolved]
  - Asthenopia [Not Recovered/Not Resolved]
  - Malaise [Not Recovered/Not Resolved]
  - Occipital neuralgia [Not Recovered/Not Resolved]
  - Clumsiness [Not Recovered/Not Resolved]
  - Discomfort [Not Recovered/Not Resolved]
  - Disability [Unknown]
  - Condition aggravated [Recovered/Resolved]
  - Hot flush [Not Recovered/Not Resolved]
  - Intermenstrual bleeding [Recovered/Resolved]
  - Sleep disorder [Not Recovered/Not Resolved]
  - Tenderness [Not Recovered/Not Resolved]
  - Fatigue [Not Recovered/Not Resolved]
  - Epilepsy [Not Recovered/Not Resolved]
  - Phonophobia [Not Recovered/Not Resolved]
  - Vertigo [Not Recovered/Not Resolved]
  - Hypoaesthesia [Not Recovered/Not Resolved]
  - Hypocalcaemia [Not Recovered/Not Resolved]
  - Visual field defect [Not Recovered/Not Resolved]
  - Impaired work ability [Recovered/Resolved]
  - Communication disorder [Not Recovered/Not Resolved]
  - Cognitive disorder [Not Recovered/Not Resolved]
  - Visual impairment [Not Recovered/Not Resolved]
  - General physical condition abnormal [Not Recovered/Not Resolved]
  - Back pain [Not Recovered/Not Resolved]
  - Depression [Not Recovered/Not Resolved]
  - Apathy [Not Recovered/Not Resolved]
  - Eye movement disorder [Not Recovered/Not Resolved]
  - Nervous system disorder [Recovering/Resolving]
  - Balance disorder [Not Recovered/Not Resolved]
  - Headache [Not Recovered/Not Resolved]
  - Tremor [Not Recovered/Not Resolved]
  - Fall [Unknown]
  - Ligament sprain [Unknown]
  - Asthenia [Not Recovered/Not Resolved]
  - Diplopia [Not Recovered/Not Resolved]
  - Blindness [Not Recovered/Not Resolved]
  - Tachycardia [Unknown]
  - Dizziness [Not Recovered/Not Resolved]
  - Cluster headache [Not Recovered/Not Resolved]
  - Retrograde amnesia [Not Recovered/Not Resolved]
  - Amnesia [Not Recovered/Not Resolved]
  - Eye injury [Not Recovered/Not Resolved]
  - Impaired quality of life [Unknown]
  - Fibroadenoma of breast [Unknown]
  - Vulvovaginal dryness [Unknown]
  - Off label use [Unknown]
  - Withdrawal syndrome [Unknown]
  - Vision blurred [Unknown]
  - Urinary incontinence [Unknown]
  - Ovarian cyst [Unknown]
  - Night sweats [Unknown]
  - Ill-defined disorder [Unknown]
  - Muscle twitching [Unknown]
  - Menometrorrhagia [Unknown]
  - Crying [Unknown]
  - Weight increased [Unknown]
  - Upper limb fracture [Unknown]
  - Hypertrichosis [Unknown]
  - Overdose [Unknown]
  - Movement disorder [Unknown]
  - Amenorrhoea [Unknown]
  - Limb discomfort [Unknown]
  - Hyperhidrosis [Unknown]
  - Blepharospasm [Unknown]

NARRATIVE: CASE EVENT DATE: 20001101
